FAERS Safety Report 4422948-4 (Version None)
Quarter: 2004Q3

REPORT INFORMATION
  Report Type: 
  Country: None (occurrence: None)
  Receive Date: 20040811
  Receipt Date: 20040805
  Transmission Date: 20050211
  Serious: Yes (Other)
  Sender: FDA-Public Use
  Company Number: GB-BRISTOL-MYERS SQUIBB COMPANY-12661302

PATIENT
  Age: 51 Year
  Sex: Male

DRUGS (3)
  1. PRAVASTATIN SODIUM [Suspect]
     Route: 065
  2. RAPAMUNE [Interacting]
     Route: 065
  3. PREDNISOLONE [Interacting]
     Dosage: DOSE: HIGH DOSE
     Route: 065

REACTIONS (5)
  - CHEST WALL PAIN [None]
  - DRUG INTERACTION [None]
  - HYPERHIDROSIS [None]
  - PAIN IN EXTREMITY [None]
  - SYNCOPE [None]
